FAERS Safety Report 16219895 (Version 2)
Quarter: 2020Q2

REPORT INFORMATION
  Report Type: Spontaneous
  Country: US (occurrence: US)
  Receive Date: 20190420
  Receipt Date: 20200623
  Transmission Date: 20200713
  Serious: Yes (Other)
  Sender: FDA-Public Use
  Company Number: US-SUN PHARMACEUTICAL INDUSTRIES LTD-2019R1-205766

PATIENT
  Age: 31 Year
  Sex: Male

DRUGS (3)
  1. BEVACIZUMAB. [Concomitant]
     Active Substance: BEVACIZUMAB
     Indication: ADENOCARCINOMA OF COLON
     Dosage: 7.5MG/KG DAY 1
     Route: 065
  2. OXALIPLATIN. [Concomitant]
     Active Substance: OXALIPLATIN
     Indication: ADENOCARCINOMA OF COLON
     Dosage: 100 MG/M2 DAY 1
     Route: 065
  3. CAPECITABIN [Suspect]
     Active Substance: CAPECITABINE
     Indication: ADENOCARCINOMA OF COLON
     Dosage: 1000 MILLIGRAM, BID
     Route: 065

REACTIONS (5)
  - Gene mutation [Recovering/Resolving]
  - Fatigue [Unknown]
  - Cerebellar syndrome [Recovering/Resolving]
  - Nausea [Unknown]
  - Neurotoxicity [Unknown]
